FAERS Safety Report 5079915-X (Version None)
Quarter: 2006Q3

REPORT INFORMATION
  Report Type: 
  Country: None (occurrence: None)
  Receive Date: 20060809
  Receipt Date: 20060731
  Transmission Date: 20061208
  Serious: Yes (Other)
  Sender: FDA-Public Use
  Company Number: 2006JP002339

PATIENT
  Age: 54 Year
  Sex: Female
  Weight: 51.7 kg

DRUGS (4)
  1. VESICARE [Suspect]
     Indication: POLLAKIURIA
     Dosage: 5 MG, ORAL
     Route: 048
     Dates: start: 20060612, end: 20060616
  2. TOFRANIL [Concomitant]
  3. RYOUKYOUJUTSUTO [Concomitant]
  4. IPD (SUPLATAST TOSILATE) [Concomitant]

REACTIONS (3)
  - MALAISE [None]
  - NAUSEA [None]
  - VOMITING [None]
